FAERS Safety Report 7483325-5 (Version None)
Quarter: 2011Q2

REPORT INFORMATION
  Report Type: 
  Country: None (occurrence: None)
  Receive Date: 20110517
  Receipt Date: 20110503
  Transmission Date: 20111010
  Serious: Yes (Hospitalization)
  Sender: FDA-Public Use
  Company Number: US-JNJFOC-20110504947

PATIENT
  Age: 37 Year
  Sex: Female

DRUGS (1)
  1. REMICADE [Suspect]
     Indication: COLITIS ULCERATIVE
     Route: 042
     Dates: start: 20090101

REACTIONS (7)
  - HYPOKINESIA [None]
  - MUSCLE SPASMS [None]
  - DEFAECATION URGENCY [None]
  - MALAISE [None]
  - HYPERVENTILATION [None]
  - DIARRHOEA [None]
  - ABDOMINAL PAIN [None]
